FAERS Safety Report 8476080-3 (Version None)
Quarter: 2012Q2

REPORT INFORMATION
  Report Type: 
  Country: None (occurrence: None)
  Receive Date: 20120628
  Receipt Date: 20120615
  Transmission Date: 20120825
  Serious: Yes (Congenital Anomaly)
  Sender: FDA-Public Use
  Company Number: US-ELI_LILLY_AND_COMPANY-US201206005951

PATIENT

DRUGS (8)
  1. CYMBALTA [Suspect]
     Dosage: 20 MG, QD
     Route: 063
     Dates: start: 20120607
  2. INSULIN [Concomitant]
     Route: 064
  3. CYMBALTA [Suspect]
     Dosage: 20 MG, QD
     Route: 063
     Dates: start: 20120607
  4. ZOLOFT [Concomitant]
     Route: 064
  5. CYMBALTA [Suspect]
     Dosage: 20 MG, QD
     Route: 064
  6. CYMBALTA [Suspect]
     Dosage: 20 MG, QD
     Route: 064
  7. ZOLOFT [Concomitant]
     Route: 064
  8. INSULIN [Concomitant]
     Route: 064

REACTIONS (6)
  - PREMATURE BABY [None]
  - FEEDING DISORDER NEONATAL [None]
  - TONGUE DISORDER [None]
  - FOETAL EXPOSURE DURING PREGNANCY [None]
  - DYSPHAGIA [None]
  - EXPOSURE DURING BREAST FEEDING [None]
